FAERS Safety Report 9619819 (Version 1)
Quarter: 2013Q4

REPORT INFORMATION
  Report Type: Spontaneous
  Country: US (occurrence: US)
  Receive Date: 20131014
  Receipt Date: 20131014
  Transmission Date: 20140711
  Serious: Yes (Other)
  Sender: FDA-Public Use
  Company Number: US-ELI_LILLY_AND_COMPANY-US201310001592

PATIENT
  Sex: Male

DRUGS (4)
  1. EFFIENT [Suspect]
     Indication: STENT PLACEMENT
     Dosage: 60 MG, SINGLE
  2. EFFIENT [Suspect]
     Dosage: 1 DF, UNKNOWN
  3. ASPIRIN [Concomitant]
  4. HEPARIN [Concomitant]

REACTIONS (1)
  - Coronary artery thrombosis [Unknown]
